FAERS Safety Report 7624405-0 (Version None)
Quarter: 2011Q3

REPORT INFORMATION
  Report Type: 
  Country: None (occurrence: None)
  Receive Date: 20110720
  Receipt Date: 20110712
  Transmission Date: 20111222
  Serious: Yes (Congenital Anomaly, Other)
  Sender: FDA-Public Use
  Company Number: US-PFIZER INC-2011159879

PATIENT
  Sex: Male

DRUGS (2)
  1. ZOLOFT [Suspect]
     Dosage: 100 MG, 1X/DAY
     Route: 064
  2. ZOLOFT [Suspect]
     Dosage: 150 MG, UNK
     Route: 064

REACTIONS (6)
  - MATERNAL EXPOSURE DURING PREGNANCY [None]
  - CRANIOSYNOSTOSIS [None]
  - AMBLYOPIA [None]
  - DEVELOPMENTAL DELAY [None]
  - BRACHYCEPHALY [None]
  - STRABISMUS [None]
